FAERS Safety Report 7778633-4 (Version None)
Quarter: 2011Q3

REPORT INFORMATION
  Report Type: 
  Country: None (occurrence: None)
  Receive Date: 20110926
  Receipt Date: 20110915
  Transmission Date: 20111222
  Serious: Yes (Hospitalization)
  Sender: FDA-Public Use
  Company Number: US-BAYER-201039931NA

PATIENT
  Age: 37 Year
  Sex: Female
  Weight: 93 kg

DRUGS (4)
  1. IBUPROFEN [Concomitant]
     Indication: PAIN
  2. IBUPROFEN [Concomitant]
     Indication: HEADACHE
     Dosage: UNK UNK, QD
  3. YASMIN [Suspect]
     Indication: ACNE
  4. YASMIN [Suspect]
     Indication: CONTRACEPTION
     Dosage: UNK UNK, UNK
     Route: 048
     Dates: start: 20060101, end: 20070101

REACTIONS (1)
  - DEEP VEIN THROMBOSIS [None]
